FAERS Safety Report 11025451 (Version 1)
Quarter: 2015Q2

REPORT INFORMATION
  Report Type: Spontaneous
  Country: JP (occurrence: None)
  Receive Date: 20150410
  Receipt Date: 20150410
  Transmission Date: 20150821
  Serious: Yes (Other)
  Sender: FDA-Public Use
  Company Number: 2015FE01145

PATIENT
  Age: 66 Year
  Sex: Male

DRUGS (7)
  1. TAMSULOSIN [Concomitant]
     Active Substance: TAMSULOSIN
  2. RANMARK (DENOSUMAB) [Concomitant]
     Active Substance: DENOSUMAB
  3. PRECIPITATED CALCIUM CARBONATE (CALCIUM CARBONATE) [Concomitant]
  4. CASODEX [Concomitant]
     Active Substance: BICALUTAMIDE
  5. GONAX [Suspect]
     Active Substance: DEGARELIX
     Indication: PROSTATE CANCER
     Route: 058
  6. ODYNE (FLUTAMIDE) [Concomitant]
  7. ALFAROL [Concomitant]
     Active Substance: ALFACALCIDOL

REACTIONS (4)
  - Prostatic specific antigen increased [None]
  - Hepatic function abnormal [None]
  - Pollakiuria [None]
  - Fracture [None]
